FAERS Safety Report 18254712 (Version 1)
Quarter: 2020Q3

REPORT INFORMATION
  Report Type: Report from Study
  Country: US (occurrence: US)
  Receive Date: 20200910
  Receipt Date: 20200910
  Transmission Date: 20201103
  Serious: No
  Sender: FDA-Public Use
  Company Number: NVSC2020US248283

PATIENT
  Sex: Male

DRUGS (1)
  1. ENTRESTO [Suspect]
     Active Substance: SACUBITRIL\VALSARTAN
     Indication: CARDIAC FAILURE
     Dosage: 1 DF, UNKNOWN
     Route: 048

REACTIONS (4)
  - Heart rate increased [Unknown]
  - Agitation [Unknown]
  - Feeling abnormal [Unknown]
  - Headache [Unknown]
